FAERS Safety Report 7638905-0 (Version None)
Quarter: 2011Q3

REPORT INFORMATION
  Report Type: 
  Country: None (occurrence: None)
  Receive Date: 20110721
  Receipt Date: 20110707
  Transmission Date: 20111222
  Serious: Yes (Other)
  Sender: FDA-Public Use
  Company Number: TPA2011A03819

PATIENT
  Sex: Male

DRUGS (2)
  1. ACTOS [Suspect]
  2. INSULIN (INSULIN) [Concomitant]

REACTIONS (2)
  - MYOCARDIAL INFARCTION [None]
  - BLADDER CANCER [None]
